FAERS Safety Report 10237976 (Version 1)
Quarter: 2014Q2

REPORT INFORMATION
  Report Type: Spontaneous
  Country: US (occurrence: US)
  Receive Date: 20140616
  Receipt Date: 20140616
  Transmission Date: 20141212
  Serious: No
  Sender: FDA-Public Use
  Company Number: US-SHIRE-US201402911

PATIENT
  Age: 41 Year
  Sex: Male
  Weight: 92.97 kg

DRUGS (1)
  1. VYVANSE [Suspect]
     Indication: ATTENTION DEFICIT/HYPERACTIVITY DISORDER
     Dosage: 30 MG, UNKNOWN
     Route: 048
     Dates: start: 201405

REACTIONS (2)
  - Drug effect decreased [Not Recovered/Not Resolved]
  - Somnolence [Not Recovered/Not Resolved]
